FAERS Safety Report 10059184 (Version 2)
Quarter: 2014Q2

REPORT INFORMATION
  Report Type: Report from Study
  Country: NL (occurrence: NL)
  Receive Date: 20140404
  Receipt Date: 20140523
  Transmission Date: 20141212
  Serious: Yes (Hospitalization)
  Sender: FDA-Public Use
  Company Number: NL-PFIZER INC-2014092996

PATIENT
  Age: 71 Year
  Sex: Female
  Weight: 73 kg

DRUGS (11)
  1. IRINOTECAN HCL [Suspect]
     Indication: COLORECTAL CANCER METASTATIC
     Dosage: 180 MG/M2 ON DAY ONE EVERY 14 DAYS
     Route: 042
     Dates: start: 20130505
  2. FOLINIC ACID [Suspect]
     Indication: COLORECTAL CANCER METASTATIC
     Dosage: 400 MG/M2 ON DAY ONE EVERY 14 DAYS
     Route: 042
     Dates: start: 20130505
  3. FLUOROURACIL [Suspect]
     Indication: COLORECTAL CANCER METASTATIC
     Dosage: 400 MG/M2 ON DAY ONE EVERY 14 DAYS
     Route: 040
     Dates: start: 20130505
  4. FLUOROURACIL [Suspect]
     Dosage: 2400 MG/M2 ON DAYS ONE AND TWO EVERY 14 DAYS
     Route: 042
     Dates: start: 20130505
  5. BLINDED THERAPY [Suspect]
     Indication: COLORECTAL CANCER METASTATIC
     Dosage: UNK
     Dates: start: 20130505
  6. NEXIUM [Concomitant]
  7. OXYCONTIN [Concomitant]
  8. OXYNORM [Concomitant]
  9. DALTEPARIN [Concomitant]
  10. TEMAZEPAM [Concomitant]
  11. SENNOSIDE A+B [Concomitant]

REACTIONS (2)
  - Nausea [Not Recovered/Not Resolved]
  - Vomiting [Not Recovered/Not Resolved]
